FAERS Safety Report 8218557-1 (Version None)
Quarter: 2012Q1

REPORT INFORMATION
  Report Type: 
  Country: None (occurrence: None)
  Receive Date: 20120319
  Receipt Date: 20100728
  Transmission Date: 20120608
  Serious: Yes (Other)
  Sender: FDA-Public Use
  Company Number: KR-JNJFOC-20100101672

PATIENT
  Sex: Male
  Weight: 54 kg

DRUGS (11)
  1. PLACEBO [Suspect]
     Indication: RHEUMATOID ARTHRITIS
     Route: 058
     Dates: start: 20061127, end: 20070416
  2. FOLIC ACID [Concomitant]
     Route: 048
     Dates: start: 20041201
  3. CIMETIDINE [Concomitant]
     Route: 048
     Dates: start: 20100412
  4. GOLIMUMAB [Suspect]
     Route: 058
     Dates: start: 20070514
  5. GOLIMUMAB [Suspect]
     Indication: RHEUMATOID ARTHRITIS
     Route: 058
     Dates: start: 20091221
  6. METHOTREXATE [Suspect]
     Indication: RHEUMATOID ARTHRITIS
     Route: 048
     Dates: start: 20061101, end: 20061122
  7. METHOTREXATE [Concomitant]
     Route: 048
     Dates: start: 20080730
  8. MELOXICAM [Concomitant]
     Route: 048
     Dates: start: 20100412
  9. MELOXICAM [Concomitant]
     Route: 048
     Dates: start: 20090119, end: 20100411
  10. CIMETIDINE [Concomitant]
     Route: 048
     Dates: start: 20090119, end: 20100411
  11. METHOTREXATE [Suspect]
     Route: 048
     Dates: start: 20061119, end: 20080723

REACTIONS (1)
  - PULMONARY TUBERCULOSIS [None]
